FAERS Safety Report 9015286 (Version 2)
Quarter: 2013Q1

REPORT INFORMATION
  Report Type: Spontaneous
  Country: US (occurrence: None)
  Receive Date: 20130103
  Receipt Date: 20130118
  Transmission Date: 20140127
  Serious: Yes (Other)
  Sender: FDA-Public Use
  Company Number: 2012P1068136

PATIENT
  Age: 51 Year
  Sex: Male

DRUGS (3)
  1. FENTANYL CITRATE [Suspect]
     Indication: PREOPERATIVE CARE
     Route: 042
     Dates: start: 20121214, end: 20121214
  2. MIDAZOLAM [Concomitant]
  3. LIDOCAINE [Concomitant]

REACTIONS (2)
  - Respiratory rate decreased [None]
  - Product formulation issue [None]
